FAERS Safety Report 9155589 (Version 3)
Quarter: 2013Q3

REPORT INFORMATION
  Report Type: Spontaneous
  Country: FR (occurrence: FR)
  Receive Date: 20130311
  Receipt Date: 20130828
  Transmission Date: 20140515
  Serious: Yes (Death, Hospitalization)
  Sender: FDA-Public Use
  Company Number: FR-GLAXOSMITHKLINE-B0871052A

PATIENT
  Age: 92 Year
  Sex: Female

DRUGS (9)
  1. ARIXTRA [Suspect]
     Indication: THROMBOSIS PROPHYLAXIS
     Dosage: 2.5MG PER DAY
     Route: 058
     Dates: start: 201212, end: 20130210
  2. KARDEGIC [Suspect]
     Indication: PRODUCT USED FOR UNKNOWN INDICATION
     Dosage: 75MG PER DAY
     Route: 048
     Dates: end: 20130210
  3. DIFFU K [Concomitant]
  4. DOLIPRANE [Concomitant]
  5. LASILIX [Concomitant]
  6. MOVICOL [Concomitant]
  7. RAMIPRIL [Concomitant]
  8. TIMOPTOL [Concomitant]
  9. ORAMORPH [Concomitant]

REACTIONS (11)
  - Cerebral haematoma [Fatal]
  - Haematoma [Recovering/Resolving]
  - Disorientation [Unknown]
  - Psychomotor retardation [Unknown]
  - Motor dysfunction [Unknown]
  - Extensor plantar response [Unknown]
  - Incorrect drug administration duration [Unknown]
  - Reflexes abnormal [Unknown]
  - General physical health deterioration [Unknown]
  - Dysphagia [Unknown]
  - Aphagia [Unknown]
